FAERS Safety Report 13166786 (Version 2)
Quarter: 2017Q1

REPORT INFORMATION
  Report Type: Spontaneous
  Country: US (occurrence: US)
  Receive Date: 20170131
  Receipt Date: 20170206
  Transmission Date: 20170428
  Serious: No
  Sender: FDA-Public Use
  Company Number: US-TAKEDA-2017MPI000669

PATIENT
  Sex: Female
  Weight: 84.35 kg

DRUGS (1)
  1. NINLARO [Suspect]
     Active Substance: IXAZOMIB
     Indication: PLASMA CELL MYELOMA
     Dosage: 4 MG, UNK
     Route: 048
     Dates: start: 20161213

REACTIONS (4)
  - Arthritis [Unknown]
  - Confusional state [Unknown]
  - Memory impairment [Unknown]
  - Cystitis [Unknown]
